FAERS Safety Report 11939959 (Version 1)
Quarter: 2016Q1

REPORT INFORMATION
  Report Type: Spontaneous
  Country: US (occurrence: US)
  Receive Date: 20160122
  Receipt Date: 20160122
  Transmission Date: 20160526
  Serious: Yes (Hospitalization, Other)
  Sender: FDA-Public Use
  Company Number: US-ASTRAZENECA-2016SE05363

PATIENT
  Sex: Male

DRUGS (4)
  1. XIGDUO XR [Suspect]
     Active Substance: DAPAGLIFLOZIN PROPANEDIOL\METFORMIN HYDROCHLORIDE
     Route: 048
  2. FARXIGA [Suspect]
     Active Substance: DAPAGLIFLOZIN PROPANEDIOL
     Route: 048
  3. LIPITOR [Concomitant]
     Active Substance: ATORVASTATIN CALCIUM
  4. ZETIA [Concomitant]
     Active Substance: EZETIMIBE

REACTIONS (9)
  - Diabetic ketoacidosis [Unknown]
  - Blood ketone body increased [Unknown]
  - Heart rate increased [Unknown]
  - Blood glucose increased [Unknown]
  - Abdominal pain [Unknown]
  - Vomiting [Unknown]
  - Dyspnoea [Unknown]
  - Blood lactic acid increased [Unknown]
  - Hyperthyroidism [Unknown]
